FAERS Safety Report 18595580 (Version 1)
Quarter: 2020Q4

REPORT INFORMATION
  Report Type: Spontaneous
  Country: NL (occurrence: FR)
  Receive Date: 20201209
  Receipt Date: 20201209
  Transmission Date: 20210114
  Serious: Yes (Hospitalization)
  Sender: FDA-Public Use
  Company Number: FR-FRESENIUS KABI-FK202012949

PATIENT
  Age: 80 Year
  Sex: Male
  Weight: 54 kg

DRUGS (3)
  1. PACLITAXEL 6MG/ML CONCENTRATE FOR SOLUTION FOR INFUSION [Suspect]
     Active Substance: PACLITAXEL
     Indication: OROPHARYNGEAL CANCER
     Dosage: PACLITAXEL KABI 6 MG/ML, CONCENTRATE FOR SOLUTION FOR INFUSION ?SEE COMMENTS
     Route: 041
     Dates: start: 20200812, end: 20201014
  2. NIVOLUMAB [Suspect]
     Active Substance: NIVOLUMAB
     Indication: OROPHARYNGEAL CANCER
     Dosage: OPDIVO 10 MG/ML, CONCENTRATE FOR SOLUTION FOR INFUSION?SEE COMMENTS
     Route: 041
     Dates: start: 20200318, end: 20200729
  3. PARACETAMOL [Suspect]
     Active Substance: ACETAMINOPHEN
     Indication: PAIN
     Route: 048
     Dates: start: 20190401, end: 20201021

REACTIONS (2)
  - Cholestasis [Recovering/Resolving]
  - Hepatocellular injury [Recovering/Resolving]

NARRATIVE: CASE EVENT DATE: 20201012
